FAERS Safety Report 4647954-6 (Version None)
Quarter: 2005Q2

REPORT INFORMATION
  Report Type: 
  Country: None (occurrence: None)
  Receive Date: 20050428
  Receipt Date: 20050418
  Transmission Date: 20051028
  Serious: Yes (Death)
  Sender: FDA-Public Use
  Company Number: ES-ABBOTT-05P-144-0297941-00

PATIENT
  Age: 54 Year
  Sex: Male

DRUGS (4)
  1. KALETRA [Suspect]
     Indication: HIV INFECTION
     Route: 048
     Dates: start: 20030214
  2. STAVUDINE [Concomitant]
     Indication: HIV INFECTION
     Dates: start: 20030214
  3. LAMIVUDINA [Concomitant]
     Indication: HIV INFECTION
     Dates: start: 20030214
  4. EFAVIRENZ [Concomitant]
     Indication: HIV INFECTION
     Dates: start: 20030214

REACTIONS (2)
  - CYTOMEGALOVIRUS INFECTION [None]
  - MYCOBACTERIUM AVIUM COMPLEX INFECTION [None]
